FAERS Safety Report 6963704-2 (Version None)
Quarter: 2010Q3

REPORT INFORMATION
  Report Type: 
  Country: None (occurrence: None)
  Receive Date: 20100830
  Receipt Date: 20100818
  Transmission Date: 20110219
  Serious: Yes (Disabling, Other)
  Sender: FDA-Public Use
  Company Number: OSCN-NO-1005S-0133

PATIENT
  Age: 66 Year
  Sex: Male

DRUGS (19)
  1. OMNISCAN [Suspect]
     Indication: RENAL TRANSPLANT
     Dosage: 20 ML, SINGLE DOSE, I.V.
     Route: 042
     Dates: start: 20050308, end: 20050308
  2. NEXIUM [Suspect]
  3. PREDNISOLON [Concomitant]
  4. ALFACALCIDOL (ETAPLPHA) [Concomitant]
  5. VITAMIN B-COMPLEX; PLAIN (B-COMBIN ST?RK) [Concomitant]
  6. CALCIUM ACETATE (PHOS-EX) [Concomitant]
  7. INNOHEP [Concomitant]
  8. FOLIC ACID [Concomitant]
  9. ERYTHROPOIETIN (NEORECORMON) [Concomitant]
  10. METOLAZONE [Concomitant]
  11. BUMETAMIDE (BURINEX) [Concomitant]
  12. CARVEDILOL (DIMITONE) [Concomitant]
  13. NORVASC [Concomitant]
  14. COZAAR [Concomitant]
  15. ACETYLSALICYLIC ACID (MAGNYL) [Concomitant]
  16. ZOPICLONE (IMOZOP) [Concomitant]
  17. FUSIDIC ACID (FUCITHALMIC) [Concomitant]
  18. ASCORBIC ACID (NYCOPLUS-C-VITAMIN) [Concomitant]
  19. ACETYLCYSTEINE [Concomitant]

REACTIONS (14)
  - ARTHRALGIA [None]
  - DERMATOPHYTOSIS [None]
  - FATIGUE [None]
  - GAIT DISTURBANCE [None]
  - HAEMOGLOBIN DECREASED [None]
  - HYPOAESTHESIA [None]
  - JOINT STIFFNESS [None]
  - JOINT SWELLING [None]
  - LIMB DISCOMFORT [None]
  - MOBILITY DECREASED [None]
  - MUSCULOSKELETAL STIFFNESS [None]
  - PAIN IN EXTREMITY [None]
  - PARAESTHESIA [None]
  - SENSORY DISTURBANCE [None]
